FAERS Safety Report 9423282 (Version 4)
Quarter: 2013Q3

REPORT INFORMATION
  Report Type: Spontaneous
  Country: US (occurrence: US)
  Receive Date: 20130726
  Receipt Date: 20130923
  Transmission Date: 20140515
  Serious: Yes (Hospitalization, Other)
  Sender: FDA-Public Use
  Company Number: US-BAYER-2013-088978

PATIENT
  Age: 18 Year
  Sex: Female

DRUGS (1)
  1. MIRENA [Suspect]
     Indication: CONTRACEPTION
     Dosage: 20 ?G/D, CONT
     Route: 015
     Dates: start: 20111104, end: 20130709

REACTIONS (13)
  - Hypoaesthesia [None]
  - Mobility decreased [None]
  - Vaginal haemorrhage [Not Recovered/Not Resolved]
  - Flank pain [None]
  - Ovarian cyst [None]
  - Abdominal pain lower [None]
  - Ovarian cyst [Recovered/Resolved]
  - Abdominal pain lower [Recovered/Resolved]
  - Abdominal pain lower [Recovered/Resolved]
  - Pain in extremity [None]
  - Fatigue [None]
  - Pain [None]
  - Abdominal pain [None]
